FAERS Safety Report 15738360 (Version 3)
Quarter: 2018Q4

REPORT INFORMATION
  Report Type: Spontaneous
  Country: CA (occurrence: CA)
  Receive Date: 20181219
  Receipt Date: 20181227
  Transmission Date: 20190205
  Serious: Yes (Death, Hospitalization, Other)
  Sender: FDA-Public Use
  Company Number: CA-CELLTRION INC.-2018CA024763

PATIENT

DRUGS (22)
  1. ENBREL [Suspect]
     Active Substance: ETANERCEPT
     Indication: JUVENILE IDIOPATHIC ARTHRITIS
     Route: 058
  2. CALCIUM [Concomitant]
     Active Substance: CALCIUM
  3. ANAKINRA [Suspect]
     Active Substance: ANAKINRA
     Indication: JUVENILE IDIOPATHIC ARTHRITIS
     Dosage: 100 MG, UNK
     Route: 058
  4. ALENDRONATE SODIUM. [Concomitant]
     Active Substance: ALENDRONATE SODIUM
  5. IRON [Concomitant]
     Active Substance: IRON
  6. LEFLUNOMIDE. [Concomitant]
     Active Substance: LEFLUNOMIDE
  7. THALIDOMIDE [Concomitant]
     Active Substance: THALIDOMIDE
  8. REMICADE [Suspect]
     Active Substance: INFLIXIMAB
     Indication: JUVENILE IDIOPATHIC ARTHRITIS
     Dosage: DURATION 365 DAYS
     Route: 041
  9. THALIDOMID [Suspect]
     Active Substance: THALIDOMIDE
     Route: 048
  10. ETANERCEPT [Suspect]
     Active Substance: ETANERCEPT
     Indication: STILL^S DISEASE
     Dosage: 10 MG, UNK
     Route: 065
  11. ETOPOSIDE. [Suspect]
     Active Substance: ETOPOSIDE
     Indication: PRODUCT USED FOR UNKNOWN INDICATION
     Dosage: 6 CYCLES OVER 34 DAYS;SOLUTION FOR INJECTION
     Route: 065
  12. TACROLIMUS. [Suspect]
     Active Substance: TACROLIMUS
     Indication: PRODUCT USED FOR UNKNOWN INDICATION
     Route: 065
  13. INFLIXIMAB PFIZER (UNKNOWN) [Suspect]
     Active Substance: INFLIXIMAB
     Indication: JUVENILE IDIOPATHIC ARTHRITIS
     Dosage: UNK;
     Route: 041
  14. METHOTREXATE SODIUM. [Suspect]
     Active Substance: METHOTREXATE SODIUM
     Indication: JUVENILE IDIOPATHIC ARTHRITIS
     Dosage: UNK;SOLUTION FOR INJECTION
     Route: 030
  15. AZATHIOPRINE. [Concomitant]
     Active Substance: AZATHIOPRINE
  16. PREDNISONE. [Concomitant]
     Active Substance: PREDNISONE
  17. KINERET [Suspect]
     Active Substance: ANAKINRA
     Indication: JUVENILE IDIOPATHIC ARTHRITIS
     Dosage: 100 MG, PER SYRINGE SINGLE-USE,PRESERVATIVE-FREE PREFILLED SYRINGES;DURATION 365 DAYS
     Route: 058
  18. CICLOSPORIN [Suspect]
     Active Substance: CYCLOSPORINE
     Indication: JUVENILE IDIOPATHIC ARTHRITIS
     Route: 048
  19. ACETAZOLAMIDE. [Concomitant]
     Active Substance: ACETAZOLAMIDE
  20. METHOTREXATE SODIUM. [Suspect]
     Active Substance: METHOTREXATE SODIUM
     Indication: PRODUCT USED FOR UNKNOWN INDICATION
     Route: 065
  21. CYCLOSPORIN [Suspect]
     Active Substance: CYCLOSPORINE
     Indication: PRODUCT USED FOR UNKNOWN INDICATION
     Route: 065
  22. HYDROXYCHLOROQUINE [Concomitant]
     Active Substance: HYDROXYCHLOROQUINE

REACTIONS (7)
  - Hepatosplenic T-cell lymphoma [Fatal]
  - Abdominal pain upper [Fatal]
  - Incorrect route of product administration [Unknown]
  - Off label use [Unknown]
  - Hypotension [Fatal]
  - Thrombocytopenia [Fatal]
  - Pyrexia [Fatal]
